FAERS Safety Report 15989038 (Version 1)
Quarter: 2019Q1

REPORT INFORMATION
  Report Type: Spontaneous
  Country: US (occurrence: US)
  Receive Date: 20190221
  Receipt Date: 20190221
  Transmission Date: 20190418
  Serious: No
  Sender: FDA-Public Use
  Company Number: US-MACLEODS PHARMACEUTICALS US LTD-MAC2019020091

PATIENT

DRUGS (1)
  1. ESZOPICLONE. [Suspect]
     Active Substance: ESZOPICLONE
     Indication: PRODUCT USED FOR UNKNOWN INDICATION
     Dosage: 3 MILLIGRAM
     Route: 065

REACTIONS (2)
  - Drug ineffective [Unknown]
  - Somnolence [Unknown]
